FAERS Safety Report 6261022-1 (Version None)
Quarter: 2009Q3

REPORT INFORMATION
  Report Type: 
  Country: None (occurrence: None)
  Receive Date: 20090709
  Receipt Date: 20090706
  Transmission Date: 20100115
  Serious: Yes (Hospitalization)
  Sender: FDA-Public Use
  Company Number: US-BIOGENIDEC-2007BI022904

PATIENT
  Age: 46 Year
  Sex: Male
  Weight: 76 kg

DRUGS (12)
  1. TYSABRI [Suspect]
     Indication: MULTIPLE SCLEROSIS
     Route: 042
     Dates: start: 20070822, end: 20070913
  2. TYSABRI [Suspect]
     Route: 042
     Dates: start: 20090223, end: 20090424
  3. BACLOFEN [Concomitant]
  4. TOPROL-XL [Concomitant]
  5. PLAVIX [Concomitant]
  6. PREVACID [Concomitant]
  7. LISINOPRIL [Concomitant]
  8. OXYCODONE [Concomitant]
  9. ZOCOR [Concomitant]
  10. LASIX [Concomitant]
  11. CHANTIX [Concomitant]
  12. DARVOCET [Concomitant]

REACTIONS (23)
  - ANAEMIA [None]
  - ARTERIAL THROMBOSIS LIMB [None]
  - ATRIAL FIBRILLATION [None]
  - CHEST PAIN [None]
  - CORONARY ARTERY DISEASE [None]
  - DELIRIUM [None]
  - DEPRESSION [None]
  - ELECTROCARDIOGRAM QT PROLONGED [None]
  - HYPOKALAEMIA [None]
  - HYPOTENSION [None]
  - KIDNEY RUPTURE [None]
  - LEUKOCYTOSIS [None]
  - MUSCULAR WEAKNESS [None]
  - MYOCARDIAL INFARCTION [None]
  - PAIN IN EXTREMITY [None]
  - PNEUMONIA KLEBSIELLA [None]
  - RENAL CYST [None]
  - RENAL FAILURE ACUTE [None]
  - SEPSIS [None]
  - SLEEP APNOEA SYNDROME [None]
  - STAPHYLOCOCCAL MEDIASTINITIS [None]
  - TOXIC ENCEPHALOPATHY [None]
  - WHEEZING [None]
